FAERS Safety Report 23437904 (Version 1)
Quarter: 2024Q1

REPORT INFORMATION
  Report Type: Spontaneous
  Country: AE (occurrence: AE)
  Receive Date: 20240124
  Receipt Date: 20240124
  Transmission Date: 20240410
  Serious: Yes (Death, Hospitalization, Other)
  Sender: FDA-Public Use
  Company Number: AE-SA-2024SA024151

PATIENT
  Age: 25 Year
  Sex: Female

DRUGS (12)
  1. DEXAMETHASONE [Suspect]
     Active Substance: DEXAMETHASONE
     Indication: COVID-19 pneumonia
     Dosage: 6 MG, BID
  2. ENOXAPARIN SODIUM [Suspect]
     Active Substance: ENOXAPARIN SODIUM
     Dosage: 80 MG, BID
     Route: 058
  3. CEFTRIAXONE [Suspect]
     Active Substance: CEFTRIAXONE\CEFTRIAXONE SODIUM
     Indication: COVID-19 pneumonia
     Dosage: UNK
     Route: 042
  4. MEROPENEM [Suspect]
     Active Substance: MEROPENEM
     Indication: COVID-19 pneumonia
     Dosage: UNK
  5. VANCOMYCIN [Suspect]
     Active Substance: VANCOMYCIN
     Indication: COVID-19 pneumonia
     Dosage: UNK
  6. REMDESIVIR [Suspect]
     Active Substance: REMDESIVIR
     Indication: COVID-19 pneumonia
     Dosage: UNK
  7. TOCILIZUMAB [Suspect]
     Active Substance: TOCILIZUMAB
     Indication: COVID-19 pneumonia
     Dosage: UNK
  8. OXYGEN [Suspect]
     Active Substance: OXYGEN
     Indication: COVID-19 pneumonia
     Dosage: UNK
     Route: 045
  9. HUMAN RED BLOOD CELL [Concomitant]
     Active Substance: HUMAN RED BLOOD CELL
     Indication: Wound dehiscence
     Dosage: PACKED RED BLOOD CELL 69 U
  10. CRYOPRECIPITATED ANTIHEMOPHILIC FACTOR (HUMAN) [Concomitant]
     Active Substance: CRYOPRECIPITATED ANTIHEMOPHILIC FACTOR (HUMAN)
     Indication: Wound dehiscence
     Dosage: 12 U
  11. PLATELETS [Concomitant]
     Active Substance: HUMAN PLATELET, ALLOGENIC
     Indication: Wound dehiscence
     Dosage: 10 U
  12. FRESH FROZEN PLASMA [Concomitant]
     Active Substance: HUMAN PLASMA
     Indication: Wound dehiscence
     Dosage: 18 U

REACTIONS (9)
  - Septic shock [Fatal]
  - Pneumonia serratia [Unknown]
  - Enterococcal infection [Unknown]
  - Pneumonia pseudomonal [Unknown]
  - Staphylococcal infection [Unknown]
  - Proteus infection [Unknown]
  - Candida infection [Unknown]
  - Exposure during pregnancy [Unknown]
  - Off label use [Unknown]
